FAERS Safety Report 6861910-9 (Version None)
Quarter: 2010Q3

REPORT INFORMATION
  Report Type: 
  Country: None (occurrence: None)
  Receive Date: 20100720
  Receipt Date: 20100720
  Transmission Date: 20110219
  Serious: Yes (Other)
  Sender: FDA-Public Use
  Company Number: None

PATIENT
  Age: 61 Year
  Sex: Male
  Weight: 97.5234 kg

DRUGS (2)
  1. EFFEXOR XR [Suspect]
     Indication: DEPRESSION
     Dosage: 37.5 MG 1/DAY BEDTIME PO
     Route: 048
     Dates: start: 20100401, end: 20100501
  2. EFFEXOR [Suspect]
     Indication: DEPRESSION
     Dosage: 25 MG 3/DAY REDUCED TO 1 PO
     Route: 048
     Dates: start: 20100305, end: 20100501

REACTIONS (6)
  - CONDITION AGGRAVATED [None]
  - DEPRESSION [None]
  - HYPERHIDROSIS [None]
  - SEXUAL DYSFUNCTION [None]
  - UNEVALUABLE EVENT [None]
  - URTICARIA [None]
